FAERS Safety Report 17188377 (Version 2)
Quarter: 2020Q3

REPORT INFORMATION
  Report Type: Other
  Country: CA (occurrence: CA)
  Receive Date: 20191222
  Receipt Date: 20200807
  Transmission Date: 20201102
  Serious: Yes (Death, Hospitalization, Other)
  Sender: FDA-Public Use
  Company Number: CA-APOTEX-2019AP026137

PATIENT
  Age: 75 Year
  Sex: Male

DRUGS (9)
  1. MYCOPHENOLATE MOFETIL. [Suspect]
     Active Substance: MYCOPHENOLATE MOFETIL
     Indication: IMMUNOSUPPRESSION
     Dosage: UNK
     Route: 065
  2. PROGRAF [Suspect]
     Active Substance: TACROLIMUS
     Dosage: UNK
     Route: 065
  3. VALGANCICLOVIR. [Concomitant]
     Active Substance: VALGANCICLOVIR
     Indication: PROPHYLAXIS
     Dosage: UNK
     Route: 065
  4. PROGRAF [Suspect]
     Active Substance: TACROLIMUS
     Indication: RENAL TRANSPLANT
     Dosage: 2.5 MILLIGRAM, BID
     Route: 065
  5. TACROLIMUS. [Suspect]
     Active Substance: TACROLIMUS
     Indication: IMMUNOSUPPRESSION
     Dosage: UNK
     Route: 065
  6. PREDNISONE. [Suspect]
     Active Substance: PREDNISONE
     Indication: RENAL TRANSPLANT
  7. MYCOPHENOLATE MOFETIL. [Suspect]
     Active Substance: MYCOPHENOLATE MOFETIL
     Indication: RENAL TRANSPLANT
  8. ANTITHYMOCYTE IMMUNOGLOBULIN (RABBIT) [Concomitant]
     Active Substance: LAPINE T-LYMPHOCYTE IMMUNE GLOBULIN
     Indication: RENAL TRANSPLANT
     Dosage: UNK
     Route: 065
  9. PREDNISONE. [Suspect]
     Active Substance: PREDNISONE
     Indication: IMMUNOSUPPRESSION
     Dosage: UNK
     Route: 065

REACTIONS (11)
  - Delayed graft function [Fatal]
  - Pyonephrosis [Fatal]
  - Mycobacterial infection [Fatal]
  - Weight decreased [Fatal]
  - Prostatitis [Fatal]
  - Disseminated Bacillus Calmette-Guerin infection [Fatal]
  - Renal failure [Fatal]
  - Renal tubular injury [Fatal]
  - Hydronephrosis [Fatal]
  - Renal transplant failure [Fatal]
  - Sepsis [Fatal]
